FAERS Safety Report 18693812 (Version 2)
Quarter: 2021Q1

REPORT INFORMATION
  Report Type: Other
  Country: GB (occurrence: GB)
  Receive Date: 20210104
  Receipt Date: 20210119
  Transmission Date: 20210419
  Serious: Yes (Life-Threatening)
  Sender: FDA-Public Use
  Company Number: GB-EMCURE PHARMACEUTICALS LTD-2020-EPL-002383

PATIENT
  Age: 83 Year
  Sex: Female
  Weight: 68 kg

DRUGS (8)
  1. CHLORPHENAMINE [Concomitant]
     Active Substance: CHLORPHENIRAMINE MALEATE
     Dosage: 12 MILLIGRAM,DAILY
     Dates: start: 20201130, end: 20201210
  2. EPIPEN [Concomitant]
     Active Substance: EPINEPHRINE
     Dosage: USE AS DIRECTED
     Dates: start: 20201218, end: 20201219
  3. PREDNISOLONE. [Concomitant]
     Active Substance: PREDNISOLONE
     Dosage: 1 DOSAGE FORM,AS DIRECTED
     Dates: start: 20200908
  4. ADCAL [Concomitant]
     Dosage: 2 DOSAGE FORM,DAILY
     Dates: start: 20200612
  5. METFORMIN [Suspect]
     Active Substance: METFORMIN HYDROCHLORIDE
     Indication: PRODUCT USED FOR UNKNOWN INDICATION
     Dosage: 500 MILLIGRAM
     Dates: start: 20201223
  6. FEXOFENADINE [Concomitant]
     Active Substance: FEXOFENADINE HYDROCHLORIDE
     Dosage: 1 DOSAGE FORM,DAILY
     Dates: start: 20200612
  7. SITAGLIPTIN [Concomitant]
     Active Substance: SITAGLIPTIN
     Dosage: 1 DOSAGE FORM,DAILY
     Dates: start: 20201116, end: 20201214
  8. LANSOPRAZOLE. [Concomitant]
     Active Substance: LANSOPRAZOLE
     Dosage: 1 DOSAGE FORM,DAILY
     Dates: start: 20200612

REACTIONS (1)
  - Swollen tongue [Recovered/Resolved]

NARRATIVE: CASE EVENT DATE: 20201223
